FAERS Safety Report 18663556 (Version 2)
Quarter: 2021Q1

REPORT INFORMATION
  Report Type: Spontaneous
  Country: US (occurrence: US)
  Receive Date: 20201224
  Receipt Date: 20210114
  Transmission Date: 20210419
  Serious: Yes (Life-Threatening, Hospitalization, Other)
  Sender: FDA-Public Use
  Company Number: US-GILEAD-2020-0510329

PATIENT
  Age: 59 Year
  Sex: Male

DRUGS (36)
  1. DOCUSATE;SENNA [Concomitant]
     Active Substance: DOCUSATE\SENNOSIDES
  2. VEKLURY [Suspect]
     Active Substance: REMDESIVIR
     Indication: COVID-19
     Dosage: UNK
     Route: 042
     Dates: start: 20200517, end: 20200526
  3. METOPROLOL. [Concomitant]
     Active Substance: METOPROLOL
  4. PROPOFOL. [Concomitant]
     Active Substance: PROPOFOL
     Dosage: UNK
     Dates: start: 20200517
  5. CEFEPIME [Concomitant]
     Active Substance: CEFEPIME HYDROCHLORIDE
  6. DUONEB [Concomitant]
     Active Substance: ALBUTEROL SULFATE\IPRATROPIUM BROMIDE
  7. AZITHROMYCIN ANHYDROUS. [Concomitant]
     Active Substance: AZITHROMYCIN ANHYDROUS
  8. VANCOMYCIN [Concomitant]
     Active Substance: VANCOMYCIN
  9. NALOXONE HYDROCHLORIDE. [Concomitant]
     Active Substance: NALOXONE HYDROCHLORIDE
     Dosage: UNK
     Dates: start: 20200509, end: 20200518
  10. LORAZEPAM. [Concomitant]
     Active Substance: LORAZEPAM
  11. LACTULOSE. [Concomitant]
     Active Substance: LACTULOSE
  12. ATIVAN [Concomitant]
     Active Substance: LORAZEPAM
  13. MIDAZOLAM. [Concomitant]
     Active Substance: MIDAZOLAM
  14. FERROUS SULFATE. [Suspect]
     Active Substance: FERROUS SULFATE
     Indication: PRODUCT USED FOR UNKNOWN INDICATION
     Dosage: UNK
     Route: 048
     Dates: start: 20200510, end: 20200519
  15. FUROSEMIDE. [Suspect]
     Active Substance: FUROSEMIDE
     Indication: POLYURIA
     Dosage: UNK
     Route: 042
     Dates: start: 20200518, end: 20200521
  16. CHLORHEXIDINE [Suspect]
     Active Substance: CHLORHEXIDINE
     Indication: PRODUCT USED FOR UNKNOWN INDICATION
     Dosage: UNK
     Route: 002
     Dates: start: 20200517, end: 20200517
  17. GABAPENTIN. [Concomitant]
     Active Substance: GABAPENTIN
  18. TOCILIZUMAB. [Concomitant]
     Active Substance: TOCILIZUMAB
  19. SALBUTAMOL SULFATE [Concomitant]
     Active Substance: ALBUTEROL SULFATE
  20. SODIUM POLYSTYRENE SULFONATE. [Concomitant]
     Active Substance: SODIUM POLYSTYRENE SULFONATE
  21. LOVENOX [LEVOFLOXACIN] [Suspect]
     Active Substance: LEVOFLOXACIN
     Indication: PROPHYLAXIS
     Dosage: 80 MG, UNK
     Route: 058
     Dates: start: 20200509
  22. CEFTRIAXONE. [Concomitant]
     Active Substance: CEFTRIAXONE
  23. PANTOPRAZOLE [Concomitant]
     Active Substance: PANTOPRAZOLE
  24. SUBOXONE [Concomitant]
     Active Substance: BUPRENORPHINE HYDROCHLORIDE\NALOXONE HYDROCHLORIDE
  25. NALOXONE [Concomitant]
     Active Substance: NALOXONE
  26. LEVETIRACETAM. [Concomitant]
     Active Substance: LEVETIRACETAM
  27. DULOXETINE. [Concomitant]
     Active Substance: DULOXETINE
  28. MACROGOL [Concomitant]
     Active Substance: POLYETHYLENE GLYCOLS
  29. METHYLPREDNISOLONE. [Concomitant]
     Active Substance: METHYLPREDNISOLONE
  30. NICOTINE. [Suspect]
     Active Substance: NICOTINE
     Indication: PRODUCT USED FOR UNKNOWN INDICATION
     Dosage: UNK
     Route: 065
     Dates: start: 20200510
  31. APREMILAST [Suspect]
     Active Substance: APREMILAST
     Indication: PRODUCT USED FOR UNKNOWN INDICATION
     Dosage: UNK
     Route: 065
  32. PARACETAMOL [Concomitant]
     Active Substance: ACETAMINOPHEN
  33. MEROPENEM. [Concomitant]
     Active Substance: MEROPENEM
  34. DEXTROMETHORPHAN [Concomitant]
     Active Substance: DEXTROMETHORPHAN
  35. ACETAMINOPHEN. [Concomitant]
     Active Substance: ACETAMINOPHEN
  36. FENTANYL. [Concomitant]
     Active Substance: FENTANYL

REACTIONS (16)
  - Retroperitoneal haematoma [Recovering/Resolving]
  - Lactic acidosis [Recovered/Resolved]
  - Iron deficiency [Not Recovered/Not Resolved]
  - Liver injury [Recovering/Resolving]
  - Haemoglobin decreased [Recovering/Resolving]
  - Septic shock [Recovering/Resolving]
  - Swelling [Not Recovered/Not Resolved]
  - Bradycardia [Not Recovered/Not Resolved]
  - Hyperkalaemia [Recovered/Resolved]
  - Cytokine storm [Not Recovered/Not Resolved]
  - Hyperglycaemia [Not Recovered/Not Resolved]
  - Acute kidney injury [Not Recovered/Not Resolved]
  - Hypotension [Recovered/Resolved]
  - Disseminated intravascular coagulation [Recovering/Resolving]
  - Pneumonia [Not Recovered/Not Resolved]
  - Shock haemorrhagic [Recovering/Resolving]

NARRATIVE: CASE EVENT DATE: 20200510
